FAERS Safety Report 6517752-7 (Version None)
Quarter: 2009Q4

REPORT INFORMATION
  Report Type: 
  Country: None (occurrence: None)
  Receive Date: 20091218
  Receipt Date: 20091203
  Transmission Date: 20100525
  Serious: Yes (Hospitalization, Other)
  Sender: FDA-Public Use
  Company Number: 8052609

PATIENT
  Sex: Female
  Weight: 72 kg

DRUGS (12)
  1. CERTOLIZUMAB PEGOL (CERTOLIZUMAB PEGOL) [Suspect]
     Indication: RHEUMATOID ARTHRITIS
     Dosage: SEE IMAGE
     Route: 058
     Dates: start: 20050928, end: 20071121
  2. CERTOLIZUMAB PEGOL (CERTOLIZUMAB PEGOL) [Suspect]
     Indication: RHEUMATOID ARTHRITIS
     Dosage: SEE IMAGE
     Route: 058
     Dates: start: 20071206, end: 20090923
  3. METHOTREXATE [Concomitant]
  4. MELOXICAM [Concomitant]
  5. METHYLPREDNISOLONE [Concomitant]
  6. FOLIC ACID [Concomitant]
  7. SILYMARIN [Concomitant]
  8. CALCIUM CARBONATE [Concomitant]
  9. ERGOCALCIFEROL [Concomitant]
  10. PERINDOPRIL ERBUMINE [Concomitant]
  11. AMOXICILLIN AND CLAVULANATE POTASSIUM [Concomitant]
  12. POLIVITAMINS [Concomitant]

REACTIONS (6)
  - BACTERAEMIA [None]
  - BLOOD ALKALINE PHOSPHATASE INCREASED [None]
  - BLOOD CREATINE INCREASED [None]
  - ENDOMETRIAL HYPERPLASIA [None]
  - ESCHERICHIA SEPSIS [None]
  - UTERINE POLYP [None]
